FAERS Safety Report 5189235-0 (Version None)
Quarter: 2006Q4

REPORT INFORMATION
  Report Type: 
  Country: None (occurrence: None)
  Receive Date: 20061218
  Receipt Date: 20061208
  Transmission Date: 20070319
  Serious: Yes (Hospitalization)
  Sender: FDA-Public Use
  Company Number: GXBR2006US02135

PATIENT
  Age: 50 Year
  Sex: Female

DRUGS (1)
  1. METFORMIN HCL TABLETS (NGX) (METFORMIN) TABLET [Suspect]
     Indication: DIABETES MELLITUS
     Dosage: 500 MG,ONCE/SINGLE, ORAL
     Route: 048
     Dates: start: 20061207

REACTIONS (1)
  - ANGIONEUROTIC OEDEMA [None]
